FAERS Safety Report 9197185 (Version 1)
Quarter: 2013Q1

REPORT INFORMATION
  Report Type: Spontaneous
  Country: US (occurrence: None)
  Receive Date: 20120709
  Receipt Date: 20120709
  Transmission Date: 20140127
  Serious: No
  Sender: FDA-Public Use
  Company Number: 2012HGS-003555

PATIENT
  Age: 34 Year
  Sex: Female
  Weight: 81.65 kg

DRUGS (13)
  1. BENLYSTA [Suspect]
     Indication: SYSTEMIC LUPUS ERYTHEMATOSUS
     Dosage: 1 IN 28 D
     Route: 041
     Dates: start: 20120322
  2. PLAQUENIL (HYDROXYCHLOROQUINE PHOSPHATE) (HYDROXYCHLOROQUINE PHOSPHATE) [Concomitant]
  3. CYMBALTA (DULOXETINE HYDROCHLORIDE) (DULOXETINE HYDROCHLORIDE) [Concomitant]
  4. METOPROLOL (METOPROLOL) (METOPROLOL) [Concomitant]
  5. LISINOPRIL (LISINOPRIL) (LISINOPRIL) [Concomitant]
  6. PEPCID (FAMOTIDINE) (FAMOTIDINE) [Concomitant]
  7. ASPIRIN (ACETYLSALICYLIC ACID) (ACETYLSALICYLIC ACID) [Concomitant]
  8. EXCERIN (VINCENTS /0110301/ (ACETYLSALICYLIC ACID, CAFFEINE, SALICYLAMIDE) [Concomitant]
  9. VITAMIN D (ERGOCALCIFEROL) (ERGOCALCIFEROL) [Concomitant]
  10. FLEXERIL (CYCLOBENZAPRINE HYDROCHLORIDE) (CYCLOBENZAPRINE HYDROCHLORIDE) [Concomitant]
  11. ADVAIR (SERETIDE) (FLUTICASONE PROPIONATE, SALMETEROL XINAFOATE) [Concomitant]
  12. VENTOLIN (SALBUTAMOL) (SALBUTAMOL) [Concomitant]
  13. VENOFER (SACCHARATED IRON OXIDE) (SACCHARATED IRON OXIDE) [Concomitant]

REACTIONS (9)
  - Pain [None]
  - Wheezing [None]
  - Respiratory tract congestion [None]
  - Sinus congestion [None]
  - Rhinorrhoea [None]
  - Pyrexia [None]
  - Oropharyngeal pain [None]
  - Cough [None]
  - Diarrhoea [None]
